FAERS Safety Report 17086745 (Version 1)
Quarter: 2019Q4

REPORT INFORMATION
  Report Type: Spontaneous
  Country: US (occurrence: US)
  Receive Date: 20191031
  Receipt Date: 20191031
  Transmission Date: 20200122
  Serious: Yes (Hospitalization)
  Sender: FDA-Public Use
  Company Number: None

PATIENT
  Age: 72 Year
  Sex: Male
  Weight: 70 kg

DRUGS (2)
  1. LORAZEPAM. [Suspect]
     Active Substance: LORAZEPAM
     Indication: AGITATION
     Route: 048
     Dates: start: 20190917
  2. LORAZEPAM. [Suspect]
     Active Substance: LORAZEPAM
     Dosage: ?          OTHER FREQUENCY:PRN;?
     Route: 030
     Dates: start: 20190917

REACTIONS (4)
  - Abnormal behaviour [None]
  - Disinhibition [None]
  - Sexually inappropriate behaviour [None]
  - Aggression [None]

NARRATIVE: CASE EVENT DATE: 20190918
